FAERS Safety Report 11122824 (Version 1)
Quarter: 2015Q2

REPORT INFORMATION
  Report Type: Spontaneous
  Country: US (occurrence: None)
  Receive Date: 20150518
  Receipt Date: 20150518
  Transmission Date: 20150821
  Serious: Yes (Hospitalization, Other)
  Sender: FDA-Public Use
  Company Number: None

PATIENT
  Age: 65 Year
  Sex: Male
  Weight: 95.26 kg

DRUGS (8)
  1. TYLENOL [Concomitant]
     Active Substance: ACETAMINOPHEN
  2. WELCHOL [Concomitant]
     Active Substance: COLESEVELAM HYDROCHLORIDE
  3. IBUPROFEN. [Concomitant]
     Active Substance: IBUPROFEN
  4. WELCHOL [Suspect]
     Active Substance: COLESEVELAM HYDROCHLORIDE
     Indication: BLOOD CHOLESTEROL INCREASED
     Dosage: 1 PACKET PER DAY MIXED IN WATE
     Route: 048
  5. NIASPAN [Concomitant]
     Active Substance: NIACIN
  6. GABAPENTIN. [Concomitant]
     Active Substance: GABAPENTIN
  7. XOPENEX INHALER [Concomitant]
  8. OTC CLARITAN [Concomitant]

REACTIONS (9)
  - Constipation [None]
  - Weight increased [None]
  - Stomatitis [None]
  - Cellulitis [None]
  - Hepatic cirrhosis [None]
  - Hepatomegaly [None]
  - Pruritus [None]
  - Oropharyngeal pain [None]
  - Abdominal discomfort [None]

NARRATIVE: CASE EVENT DATE: 20150515
